FAERS Safety Report 5923902-3 (Version None)
Quarter: 2008Q4

REPORT INFORMATION
  Report Type: 
  Country: None (occurrence: None)
  Receive Date: 20081020
  Receipt Date: 20081009
  Transmission Date: 20090506
  Serious: Yes (Hospitalization)
  Sender: FDA-Public Use
  Company Number: JP-MERCK-0810USA02252

PATIENT
  Age: 75 Year
  Sex: Female

DRUGS (5)
  1. PEPCID RPD [Suspect]
     Route: 048
     Dates: start: 20080414, end: 20080416
  2. CELECOX [Concomitant]
     Route: 048
     Dates: start: 20080414, end: 20080416
  3. HERBESSER [Suspect]
     Route: 065
  4. BEZATOL [Suspect]
     Route: 065
  5. FERROMIA [Suspect]
     Route: 065

REACTIONS (1)
  - PULMONARY EMBOLISM [None]
